FAERS Safety Report 5203680-6 (Version None)
Quarter: 2007Q1

REPORT INFORMATION
  Report Type: 
  Country: None (occurrence: None)
  Receive Date: 20070105
  Receipt Date: 20070105
  Transmission Date: 20070707
  Serious: Yes (Other)
  Sender: FDA-Public Use
  Company Number: None

PATIENT
  Sex: Male

DRUGS (3)
  1. FLEBOGAMMA [Suspect]
     Indication: HYPOGLOBULINAEMIA
     Dosage: 25 GMS ONCE Q 2 WKS IV
     Route: 042
     Dates: start: 20061230
  2. FLEBOGAMMA [Suspect]
     Indication: HYPOGLOBULINAEMIA
     Dosage: 25 GMS ONCE Q 2 WKS IV
     Route: 042
     Dates: start: 20070104
  3. SOLU-MEDROL [Concomitant]

REACTIONS (4)
  - INFUSION RELATED REACTION [None]
  - PAIN [None]
  - POOR QUALITY DRUG ADMINISTERED [None]
  - SIMILAR REACTION ON PREVIOUS EXPOSURE TO DRUG [None]
